FAERS Safety Report 9656508 (Version 2)
Quarter: 2014Q3

REPORT INFORMATION
  Report Type: Spontaneous
  Country: US (occurrence: US)
  Receive Date: 20131030
  Receipt Date: 20140717
  Transmission Date: 20150326
  Serious: Yes (Other)
  Sender: FDA-Public Use
  Company Number: US-BAYER-2013-131716

PATIENT
  Sex: Female

DRUGS (1)
  1. MIRENA [Suspect]
     Active Substance: LEVONORGESTREL
     Dosage: 20 MCG/24HR, CONT
     Route: 015
     Dates: start: 20081015, end: 20101019

REACTIONS (8)
  - Pain [None]
  - General physical health deterioration [None]
  - Emotional distress [None]
  - Uterine perforation [None]
  - Procedural pain [None]
  - Injury [None]
  - Medical device pain [None]
  - Medical device discomfort [None]

NARRATIVE: CASE EVENT DATE: 20101019
